FAERS Safety Report 18307336 (Version 1)
Quarter: 2020Q3

REPORT INFORMATION
  Report Type: Spontaneous
  Country: US (occurrence: US)
  Receive Date: 20200924
  Receipt Date: 20200924
  Transmission Date: 20201103
  Serious: No
  Sender: FDA-Public Use
  Company Number: None

PATIENT
  Sex: Female

DRUGS (1)
  1. ETONOGESTREL/ETHINYL ESTRADIOL [Suspect]
     Active Substance: ETHINYL ESTRADIOL\ETONOGESTREL
     Dosage: ?          QUANTITY:1 RING;?
     Route: 067
     Dates: start: 20200829, end: 20200919

REACTIONS (7)
  - Abdominal distension [None]
  - Pain in extremity [None]
  - Depression [None]
  - Insomnia [None]
  - Anxiety [None]
  - Acne [None]
  - Abdominal pain [None]
